FAERS Safety Report 7917918-5 (Version None)
Quarter: 2011Q4

REPORT INFORMATION
  Report Type: 
  Country: None (occurrence: None)
  Receive Date: 20111116
  Receipt Date: 20111110
  Transmission Date: 20120403
  Serious: Yes (Hospitalization, Other)
  Sender: FDA-Public Use
  Company Number: PHHY2011BR73594

PATIENT
  Age: 11 Year
  Sex: Male

DRUGS (2)
  1. TEGRETOL [Suspect]
     Dosage: UNK UKN, UNK
     Route: 048
  2. TEGRETOL [Suspect]
     Dosage: UNK UKN, UNK

REACTIONS (2)
  - DIABETES MELLITUS [None]
  - CONVULSION [None]
